FAERS Safety Report 4694272-6 (Version None)
Quarter: 2005Q2

REPORT INFORMATION
  Report Type: 
  Country: None (occurrence: None)
  Receive Date: 20050620
  Receipt Date: 20050608
  Transmission Date: 20051028
  Serious: Yes (Hospitalization)
  Sender: FDA-Public Use
  Company Number: US-SOLVAY-00205001930

PATIENT
  Age: 758 Month
  Sex: Female
  Weight: 57 kg

DRUGS (13)
  1. TOPOTECAN [Concomitant]
     Indication: CHEMOTHERAPY
     Dosage: 5 DAYS WEEK/EVERY 3 WEEKS
     Route: 042
     Dates: start: 20050401
  2. MARINOL [Suspect]
     Indication: NAUSEA
     Dosage: DAILY DOSE: 5 MILLIGRAM(S)
     Route: 048
     Dates: start: 20050501, end: 20050101
  3. TOPROL-XL [Concomitant]
     Indication: HYPERTENSION
     Dosage: DAILY DOSE:  UNKNOWN
     Route: 048
  4. SYNTHROID [Concomitant]
     Indication: HYPOTHYROIDISM
     Dosage: DAILY DOSE:  UNKNOWN
     Route: 048
  5. ZELNORM [Concomitant]
     Indication: GASTRIC DISORDER
     Dosage: DAILY DOSE:  UNKNOWN
     Route: 048
  6. REGLAN [Concomitant]
     Indication: GASTRIC DISORDER
     Dosage: DAILY DOSE:  UNKNOWN
     Route: 048
  7. COUMADIN [Concomitant]
     Indication: ANTICOAGULANT THERAPY
     Dosage: DAILY DOSE:  UNKNOWN
     Route: 048
  8. WELLBUTRIN [Concomitant]
     Indication: DEPRESSION
     Dosage: DAILY DOSE:  UNKNOWN
     Route: 048
  9. ATIVAN [Concomitant]
     Indication: NAUSEA
     Dosage: DAILY DOSE:  UNKNOWN
     Route: 048
     Dates: start: 20050501
  10. ZOFRAN [Concomitant]
     Indication: NAUSEA
     Dosage: DAILY DOSE:  UNKNOWN
     Route: 048
     Dates: start: 20050501
  11. PHENERGAN [Concomitant]
     Indication: NAUSEA
     Dosage: DAILY DOSE:  UNKNOWN
     Route: 065
     Dates: start: 20050501
  12. PROTONIX [Concomitant]
     Indication: NAUSEA
     Dosage: DAILY DOSE:  UNKNOWN
     Route: 048
     Dates: start: 20050501
  13. TPN [Concomitant]
     Indication: MALNUTRITION
     Dosage: DAILY DOSE:  UNKNOWN
     Route: 042

REACTIONS (2)
  - DRUG INEFFECTIVE [None]
  - INTESTINAL OBSTRUCTION [None]
